FAERS Safety Report 7523602-2 (Version None)
Quarter: 2011Q2

REPORT INFORMATION
  Report Type: 
  Country: None (occurrence: None)
  Receive Date: 20110601
  Receipt Date: 20110601
  Transmission Date: 20111010
  Serious: Yes (Life-Threatening)
  Sender: FDA-Public Use
  Company Number: None

PATIENT
  Sex: Female
  Weight: 12.7007 kg

DRUGS (1)
  1. LANSOPRAZOLE DR ODT TABS 1'S 15 MG NA [Suspect]
     Indication: GASTROOESOPHAGEAL REFLUX DISEASE
     Dosage: 1 TABLET 30 MIN BEFORE FOOD 1 X A DAY PO
     Route: 048
     Dates: start: 20100301, end: 20110527

REACTIONS (1)
  - ABNORMAL BEHAVIOUR [None]
